FAERS Safety Report 8173894-4 (Version None)
Quarter: 2012Q1

REPORT INFORMATION
  Report Type: 
  Country: None (occurrence: None)
  Receive Date: 20120229
  Receipt Date: 20120217
  Transmission Date: 20120608
  Serious: Yes (Hospitalization)
  Sender: FDA-Public Use
  Company Number: DE-ELI_LILLY_AND_COMPANY-DE201202005463

PATIENT
  Sex: Female

DRUGS (5)
  1. FORTEO [Suspect]
     Indication: OSTEOPOROSIS
     Dosage: UNK, QD
     Route: 058
     Dates: start: 20110809
  2. CORTISONE ACETATE [Concomitant]
  3. ANTIDEPRESSANTS [Concomitant]
  4. CARDIAC THERAPY [Concomitant]
  5. INSULIN [Concomitant]

REACTIONS (3)
  - INFECTION [None]
  - RIB FRACTURE [None]
  - COUGH [None]
